FAERS Safety Report 10021185 (Version 1)
Quarter: 2014Q1

REPORT INFORMATION
  Report Type: Report from Study
  Country: DE (occurrence: DE)
  Receive Date: 20140319
  Receipt Date: 20140319
  Transmission Date: 20141002
  Serious: Yes (Other)
  Sender: FDA-Public Use
  Company Number: DE-CELGENEUS-062-21880-14030554

PATIENT
  Age: 70 Year
  Sex: Female
  Weight: 83 kg

DRUGS (1)
  1. REVLIMID [Suspect]
     Indication: PLASMA CELL MYELOMA
     Dosage: 5 MILLIGRAM
     Route: 048
     Dates: start: 201105, end: 20140224

REACTIONS (1)
  - Paget^s disease of nipple [Not Recovered/Not Resolved]
